FAERS Safety Report 7221285-2 (Version None)
Quarter: 2011Q1

REPORT INFORMATION
  Report Type: 
  Country: None (occurrence: None)
  Receive Date: 20110112
  Receipt Date: 20110106
  Transmission Date: 20110831
  Serious: Yes (Death, Hospitalization, Other)
  Sender: FDA-Public Use
  Company Number: PHEH2009US14797

PATIENT
  Sex: Female

DRUGS (12)
  1. LEVOXYL [Concomitant]
  2. ALBUTEROL [Concomitant]
     Indication: WHEEZING
     Dosage: 2 UNK, PRN
  3. XANAX [Concomitant]
     Indication: ANXIETY
     Dosage: 0.25 MG, PRN
     Dates: start: 20100915
  4. FOLIC ACID [Concomitant]
  5. DETROL [Concomitant]
  6. ZITHROMAX [Concomitant]
     Indication: CHRONIC OBSTRUCTIVE PULMONARY DISEASE
     Dosage: 500 MG, QD
     Dates: start: 20101119, end: 20101125
  7. EXJADE [Suspect]
     Indication: MYELODYSPLASTIC SYNDROME
     Dosage: 2000 MG, QD
     Route: 048
     Dates: start: 20090828
  8. ARICEPT [Concomitant]
  9. OXYBUTYNIN [Concomitant]
  10. PROCHLORPERAZINE [Concomitant]
  11. FLONASE [Concomitant]
     Indication: BRONCHITIS
     Dosage: 50 MEQ, UNK
     Dates: start: 20101123
  12. DELTASONE [Concomitant]
     Indication: CHRONIC OBSTRUCTIVE PULMONARY DISEASE
     Dosage: 50 MG, QD
     Dates: start: 20101119, end: 20101124

REACTIONS (8)
  - ABDOMINAL PAIN UPPER [None]
  - SPLENOMEGALY [None]
  - SEPSIS [None]
  - OSTEOSCLEROSIS [None]
  - NERVOUS SYSTEM DISORDER [None]
  - FUNGAL INFECTION [None]
  - HEADACHE [None]
  - LYMPHADENOPATHY [None]
